FAERS Safety Report 8489961-1 (Version None)
Quarter: 2012Q3

REPORT INFORMATION
  Report Type: 
  Country: None (occurrence: None)
  Receive Date: 20120705
  Receipt Date: 20120627
  Transmission Date: 20120928
  Serious: Yes (Hospitalization, Other)
  Sender: FDA-Public Use
  Company Number: US-BAXTER-2012BAX008272

PATIENT
  Sex: Male

DRUGS (2)
  1. COUMADIN [Suspect]
  2. DIANEAL [Suspect]
     Indication: PERITONEAL DIALYSIS
     Route: 033
     Dates: start: 20120306

REACTIONS (10)
  - DYSPHAGIA [None]
  - GASTRIC DISORDER [None]
  - HYPOTENSION [None]
  - MALNUTRITION [None]
  - BLOOD GLUCOSE DECREASED [None]
  - ALTERED STATE OF CONSCIOUSNESS [None]
  - INTERNATIONAL NORMALISED RATIO INCREASED [None]
  - BLOOD ALBUMIN DECREASED [None]
  - ARRHYTHMIA [None]
  - ULCER [None]
